FAERS Safety Report 10732640 (Version 1)
Quarter: 2015Q1

REPORT INFORMATION
  Report Type: Spontaneous
  Country: US (occurrence: None)
  Receive Date: 20150120
  Receipt Date: 20150120
  Transmission Date: 20150721
  Serious: Yes (Other)
  Sender: FDA-Public Use
  Company Number: US-H14001-15-00030

PATIENT
  Age: 57 Year
  Sex: Female

DRUGS (14)
  1. TRAZODONE [Concomitant]
     Active Substance: TRAZODONE HYDROCHLORIDE
  2. QUETIAPINE (QUETIAPINE) (UNKNOWN) (QUETIAPINE) [Concomitant]
  3. BUSPIRONE [Suspect]
     Active Substance: BUSPIRONE HYDROCHLORIDE
     Indication: AGITATION
  4. SERTRALINE (SERTRALINE) (UNKNOWN) (SERTRALINE) [Concomitant]
  5. CLONAZEPAM. [Suspect]
     Active Substance: CLONAZEPAM
     Indication: AGITATION
  6. RISPERIDONE (RISPERIDONE) (UNKNOWN) (RISPERIDONE) [Concomitant]
  7. HALOPERIDOL (HALOPERIDOL) (UNKNOWN) (HALOPERIDOL) [Concomitant]
  8. CITALOPRAM (CITALOPRAM) (UNKNOWN) (CITALOPRAM) [Concomitant]
  9. LORAZEPAM (LORAZEPAM) (UNKNOWN) (LORAZEPAM) [Suspect]
     Active Substance: LORAZEPAM
     Indication: AGITATION
  10. OLANZAPINE (OLANZAPINE) (UNKNOWN) (OLANZAPINE) [Concomitant]
  11. CHLORPROMAZINE (CHLORPROMAZINE) (UNKNOWN) (CHLORPROMAZINE) [Concomitant]
  12. ARIPIPRAZOLE (ARIPIPRAZOLE) (UNKNOWN) (ARIPIPRAZOLE) [Concomitant]
  13. FLUPHENAZINE (FLUPHENAZINE) (UNKNOWN) (FLUPHENAZINE) [Concomitant]
  14. MIRTAZAPINE (MIRTAZAPINE) (UNKNOWN) (MIRTAZAPINE) [Concomitant]

REACTIONS (4)
  - Psychotic disorder [None]
  - Condition aggravated [None]
  - No therapeutic response [None]
  - Agitation [None]
